FAERS Safety Report 15267225 (Version 1)
Quarter: 2018Q3

REPORT INFORMATION
  Report Type: Report from Study
  Country: DE (occurrence: DE)
  Receive Date: 20180810
  Receipt Date: 20180810
  Transmission Date: 20181010
  Serious: Yes (Hospitalization, Other)
  Sender: FDA-Public Use
  Company Number: DE-TEVA-2018-DE-937346

PATIENT
  Age: 79 Year
  Sex: Female
  Weight: 83 kg

DRUGS (9)
  1. GREEN TEA EXTRACT [Concomitant]
     Dates: start: 20160920
  2. INSULIN [Concomitant]
     Active Substance: INSULIN NOS
     Dates: start: 20170714
  3. BISOPROLOL [Concomitant]
     Active Substance: BISOPROLOL
     Dates: start: 20171130
  4. L?THYROXIN [Concomitant]
     Active Substance: LEVOTHYROXINE SODIUM
     Dates: start: 20170313
  5. ALLOPURINOL. [Suspect]
     Active Substance: ALLOPURINOL
     Indication: PROPHYLAXIS
     Dosage: 150 MILLIGRAM DAILY;
     Route: 048
     Dates: start: 20151209, end: 20180108
  6. ELIQUIS [Concomitant]
     Active Substance: APIXABAN
     Dates: start: 2014
  7. CANDESARTAN. [Concomitant]
     Active Substance: CANDESARTAN
     Dates: start: 20171130
  8. HYDROCHLOROTHIAZIDE. [Concomitant]
     Active Substance: HYDROCHLOROTHIAZIDE
     Dates: start: 20170403
  9. TORASEMIDE [Concomitant]
     Active Substance: TORSEMIDE
     Dates: start: 20170714

REACTIONS (4)
  - Cardiac failure [Not Recovered/Not Resolved]
  - Gastrointestinal haemorrhage [Recovered/Resolved]
  - Acute kidney injury [Recovered/Resolved]
  - Hepatic congestion [Not Recovered/Not Resolved]

NARRATIVE: CASE EVENT DATE: 20171228
